FAERS Safety Report 12739397 (Version 1)
Quarter: 2016Q3

REPORT INFORMATION
  Report Type: Spontaneous
  Country: US (occurrence: US)
  Receive Date: 20160913
  Receipt Date: 20160913
  Transmission Date: 20161109
  Serious: No
  Sender: FDA-Public Use
  Company Number: US-RECKITT BENCKISER HEALTHCARE INT LIMITED-RB-83159-2016

PATIENT
  Sex: Male

DRUGS (1)
  1. MUCINEX [Suspect]
     Active Substance: GUAIFENESIN
     Indication: EMPHYSEMA
     Dosage: 1 TABLET IN THE MORNING AND THAN 2 TABLETS AT NIGHT
     Route: 065

REACTIONS (2)
  - No adverse event [Unknown]
  - Product use issue [Unknown]
